FAERS Safety Report 19441455 (Version 1)
Quarter: 2021Q2

REPORT INFORMATION
  Report Type: Spontaneous
  Country: US (occurrence: US)
  Receive Date: 20210618
  Receipt Date: 20210618
  Transmission Date: 20210717
  Serious: No
  Sender: FDA-Public Use
  Company Number: None

PATIENT
  Age: 75 Year
  Sex: Female
  Weight: 73.1 kg

DRUGS (12)
  1. CALCIUM [Concomitant]
     Active Substance: CALCIUM
  2. ROBAXIN [Concomitant]
     Active Substance: METHOCARBAMOL
  3. ZOFRAN [Concomitant]
     Active Substance: ONDANSETRON HYDROCHLORIDE
  4. ARIMIDEX [Concomitant]
     Active Substance: ANASTROZOLE
  5. STOOL SOFTENER + LAXATIVE [Concomitant]
  6. KEPPRA [Concomitant]
     Active Substance: LEVETIRACETAM
  7. EQL VITAMIN D3 [Concomitant]
  8. ASPIR?LOW [Concomitant]
     Active Substance: ASPIRIN
  9. CIPRO [Concomitant]
     Active Substance: CIPROFLOXACIN HYDROCHLORIDE
  10. IBRANCE [Suspect]
     Active Substance: PALBOCICLIB
     Indication: BREAST CANCER
     Route: 048
     Dates: start: 20210522
  11. DOXYCYCLINE HYCLATE. [Concomitant]
     Active Substance: DOXYCYCLINE HYCLATE
  12. METFORMIN HCL [Concomitant]
     Active Substance: METFORMIN HYDROCHLORIDE

REACTIONS (1)
  - No adverse event [None]

NARRATIVE: CASE EVENT DATE: 20210613
